FAERS Safety Report 19833667 (Version 3)
Quarter: 2022Q1

REPORT INFORMATION
  Report Type: Report from Study
  Country: CA (occurrence: CA)
  Receive Date: 20210915
  Receipt Date: 20220210
  Transmission Date: 20220423
  Serious: Yes (Death, Hospitalization, Other)
  Sender: FDA-Public Use
  Company Number: CA-MYLANLABS-2021M1045744

PATIENT
  Age: 82 Year
  Sex: Female

DRUGS (1)
  1. HULIO [Suspect]
     Active Substance: ADALIMUMAB-FKJP
     Indication: Crohn^s disease
     Dosage: 40 MILLIGRAM, QW

REACTIONS (15)
  - Death [Fatal]
  - Pancreatic carcinoma [Unknown]
  - Mental disorder [Unknown]
  - Abdominal pain upper [Unknown]
  - Feeling hot [Unknown]
  - Asthenia [Unknown]
  - Fall [Unknown]
  - Pain [Unknown]
  - Infection [Unknown]
  - Erythema [Unknown]
  - Swelling [Unknown]
  - Dyspnoea [Unknown]
  - Product dose omission issue [Unknown]
  - Depression [Unknown]
  - Confusional state [Unknown]

NARRATIVE: CASE EVENT DATE: 20210901
